FAERS Safety Report 6050242-7 (Version None)
Quarter: 2009Q1

REPORT INFORMATION
  Report Type: 
  Country: None (occurrence: None)
  Receive Date: 20090116
  Receipt Date: 20090105
  Transmission Date: 20090719
  Serious: Yes (Death, Hospitalization)
  Sender: FDA-Public Use
  Company Number: KV200900019

PATIENT
  Age: 24 Year
  Sex: Female

DRUGS (4)
  1. HYDROMORPHONE HYDROCHLORIDE [Suspect]
     Indication: NEOPLASM MALIGNANT
     Dosage: ORAL
     Route: 048
  2. MORPHINE SULFATE [Suspect]
     Indication: NEOPLASM MALIGNANT
     Dosage: 15 MG, ORAL
     Route: 048
  3. FENTANYL-100 [Concomitant]
  4. CHEMOTHERAPEUTICS NOS [Concomitant]

REACTIONS (5)
  - MALAISE [None]
  - MALIGNANT NEOPLASM PROGRESSION [None]
  - NON-HODGKIN'S LYMPHOMA [None]
  - PRODUCT QUALITY ISSUE [None]
  - SOMNOLENCE [None]
